FAERS Safety Report 13909995 (Version 1)
Quarter: 2017Q3

REPORT INFORMATION
  Report Type: Spontaneous
  Country: TW (occurrence: TW)
  Receive Date: 20170828
  Receipt Date: 20170828
  Transmission Date: 20171127
  Serious: Yes (Hospitalization)
  Sender: FDA-Public Use
  Company Number: PHHY2017TW124912

PATIENT
  Age: 54 Year

DRUGS (1)
  1. CO-DIOVAN [Suspect]
     Active Substance: HYDROCHLOROTHIAZIDE\VALSARTAN
     Indication: PRODUCT USED FOR UNKNOWN INDICATION
     Dosage: 0.5 OT, QD
     Route: 065
     Dates: start: 201109, end: 2015

REACTIONS (5)
  - Dyspnoea [Unknown]
  - Wrong technique in product usage process [Unknown]
  - Chronic kidney disease [Unknown]
  - Cardiac failure [Unknown]
  - Infection [Unknown]

NARRATIVE: CASE EVENT DATE: 201109
